FAERS Safety Report 10063462 (Version 2)
Quarter: 2014Q2

REPORT INFORMATION
  Report Type: Spontaneous
  Country: NL (occurrence: NL)
  Receive Date: 20140407
  Receipt Date: 20140407
  Transmission Date: 20141212
  Serious: Yes (Death)
  Sender: FDA-Public Use
  Company Number: NL-009507513-1306NLD009456

PATIENT
  Sex: Female

DRUGS (1)
  1. TIMOPTOL XE [Suspect]
     Indication: GLAUCOMA
     Route: 047

REACTIONS (2)
  - Death [Fatal]
  - Alopecia [Not Recovered/Not Resolved]
